FAERS Safety Report 6430217-6 (Version None)
Quarter: 2009Q4

REPORT INFORMATION
  Report Type: 
  Country: None (occurrence: None)
  Receive Date: 20091104
  Receipt Date: 20091104
  Transmission Date: 20100525
  Serious: Yes (Hospitalization, Disabling)
  Sender: FDA-Public Use
  Company Number: None

PATIENT
  Sex: Male
  Weight: 136.0791 kg

DRUGS (1)
  1. AMIODARONE HCL [Suspect]
     Indication: ATRIAL TACHYCARDIA
     Dosage: 400MG BID PO
     Route: 048
     Dates: start: 20090917, end: 20091025

REACTIONS (5)
  - ANGER [None]
  - ANXIETY [None]
  - FALL [None]
  - LOSS OF CONTROL OF LEGS [None]
  - MUSCULAR WEAKNESS [None]
